FAERS Safety Report 13001507 (Version 1)
Quarter: 2016Q4

REPORT INFORMATION
  Report Type: Other
  Country: CA (occurrence: CA)
  Receive Date: 20161206
  Receipt Date: 20161206
  Transmission Date: 20170207
  Serious: Yes (Life-Threatening, Disabling, Other)
  Sender: FDA-Public Use
  Company Number: CA-APOTEX-2016AP015054

PATIENT
  Age: 70 Year
  Sex: Male
  Weight: 62 kg

DRUGS (2)
  1. APO-RISPERIDONE [Suspect]
     Active Substance: RISPERIDONE
     Indication: AFFECTIVE DISORDER
  2. APO-RISPERIDONE [Suspect]
     Active Substance: RISPERIDONE
     Indication: PSYCHOTIC DISORDER
     Dosage: 1 MG, BID
     Route: 048

REACTIONS (2)
  - Posture abnormal [Unknown]
  - Extrapyramidal disorder [Unknown]
